FAERS Safety Report 5175590-4 (Version None)
Quarter: 2006Q4

REPORT INFORMATION
  Report Type: 
  Country: None (occurrence: None)
  Receive Date: 20061212
  Receipt Date: 20061212
  Transmission Date: 20070319
  Serious: No
  Sender: FDA-Public Use
  Company Number: None

PATIENT
  Age: 30 Year
  Sex: Female
  Weight: 77.1115 kg

DRUGS (1)
  1. AMBIEN [Suspect]
     Indication: INSOMNIA
     Dosage: PO
     Route: 048
     Dates: start: 20060501, end: 20061211

REACTIONS (6)
  - ABNORMAL SLEEP-RELATED EVENT [None]
  - ACNE [None]
  - DISINHIBITION [None]
  - HAEMORRHAGE [None]
  - SLEEP WALKING [None]
  - THINKING ABNORMAL [None]
